FAERS Safety Report 6323815 (Version 14)
Quarter: 2015Q3

REPORT INFORMATION
  Report Type: Report from Study
  Country: GB (occurrence: GB)
  Receive Date: 20070531
  Receipt Date: 20150806
  Transmission Date: 20151125
  Serious: Yes (Life-Threatening, Congenital Anomaly, Other)
  Sender: FDA-Public Use
  Company Number: GB-B.I. PHARMACEUTICALS,INC./RIDGEFIELD-2006-BP-09178BP

PATIENT
  Age: 0 Year
  Sex: Male

DRUGS (2)
  1. VIRAMUNE [Suspect]
     Active Substance: NEVIRAPINE
     Indication: EXPOSURE DURING PREGNANCY
     Route: 064
     Dates: start: 20060717
  2. COMBIVIR [Suspect]
     Active Substance: LAMIVUDINE\ZIDOVUDINE
     Indication: EXPOSURE DURING PREGNANCY
     Route: 064
     Dates: start: 20060717

REACTIONS (10)
  - Cytomegalovirus infection [Unknown]
  - Foetal-maternal haemorrhage [Unknown]
  - Haemoglobin decreased [Unknown]
  - Ascites [Unknown]
  - Developmental delay [Unknown]
  - Pericardial effusion [Unknown]
  - Hydrops foetalis [Unknown]
  - Ultrasound antenatal screen abnormal [Unknown]
  - Small for dates baby [Unknown]
  - Cardiomyopathy [Unknown]

NARRATIVE: CASE EVENT DATE: 20060808
